FAERS Safety Report 13950466 (Version 1)
Quarter: 2017Q3

REPORT INFORMATION
  Report Type: Spontaneous
  Country: MX (occurrence: MX)
  Receive Date: 20170908
  Receipt Date: 20170908
  Transmission Date: 20171128
  Serious: Yes (Other)
  Sender: FDA-Public Use
  Company Number: MX-ABBVIE-17P-107-2094255-00

PATIENT
  Sex: Male

DRUGS (2)
  1. TRUVADA [Concomitant]
     Active Substance: EMTRICITABINE\TENOFOVIR DISOPROXIL FUMARATE
     Indication: PRODUCT USED FOR UNKNOWN INDICATION
  2. KALETRA [Suspect]
     Active Substance: LOPINAVIR\RITONAVIR
     Indication: PRODUCT USED FOR UNKNOWN INDICATION
     Dosage: 4 A DAY, EVERY 12 HOURS
     Route: 048
     Dates: start: 2016

REACTIONS (3)
  - Kaposi^s sarcoma [Unknown]
  - Virologic failure [Unknown]
  - Immunodeficiency [Unknown]
